FAERS Safety Report 8600743-X (Version None)
Quarter: 2012Q3

REPORT INFORMATION
  Report Type: 
  Country: None (occurrence: None)
  Receive Date: 20120817
  Receipt Date: 20120807
  Transmission Date: 20120928
  Serious: Yes (Other)
  Sender: FDA-Public Use
  Company Number: JP-SANOFI-AVENTIS-2012SA057279

PATIENT
  Age: 74 Year
  Sex: Female

DRUGS (10)
  1. ENALAPRIL MALEATE [Concomitant]
     Indication: HYPERTENSION
     Route: 048
  2. PLAVIX [Suspect]
     Indication: PERCUTANEOUS CORONARY INTERVENTION
     Route: 048
     Dates: start: 20120524
  3. BUFFERIN [Concomitant]
     Indication: MYOCARDIAL INFARCTION
     Route: 048
     Dates: start: 20120524
  4. TICLOPIDINE HCL [Concomitant]
     Dates: end: 20120524
  5. SIGMART [Concomitant]
     Indication: ANGINA PECTORIS
  6. BUFFERIN [Concomitant]
     Indication: PERCUTANEOUS CORONARY INTERVENTION
     Route: 048
     Dates: start: 20120524
  7. MEXILETINE HYDROCHLORIDE [Concomitant]
  8. CARVEDILOL [Concomitant]
     Route: 048
  9. PLAVIX [Suspect]
     Indication: MYOCARDIAL INFARCTION
     Route: 048
     Dates: start: 20120524
  10. LANSOPRAZOLE [Concomitant]

REACTIONS (2)
  - PYREXIA [None]
  - ANAEMIA [None]
